FAERS Safety Report 9396619 (Version 1)
Quarter: 2013Q3

REPORT INFORMATION
  Report Type: Other
  Country: AU (occurrence: AU)
  Receive Date: 20130711
  Receipt Date: 20130711
  Transmission Date: 20140515
  Serious: Yes (Hospitalization, Other)
  Sender: FDA-Public Use
  Company Number: AT-RB-055910-13

PATIENT
  Sex: 0

DRUGS (1)
  1. SUBOXONE [Suspect]
     Indication: DRUG WITHDRAWAL MAINTENANCE THERAPY
     Dosage: DOSING DETAILS UNKNOWN
     Route: 065

REACTIONS (6)
  - Traumatic liver injury [Unknown]
  - Splenic rupture [Unknown]
  - Craniocerebral injury [Unknown]
  - Rib fracture [Unknown]
  - Agitation [Unknown]
  - Pain [Unknown]
